FAERS Safety Report 5283457-6 (Version None)
Quarter: 2007Q2

REPORT INFORMATION
  Report Type: 
  Country: None (occurrence: None)
  Receive Date: 20070402
  Receipt Date: 20070308
  Transmission Date: 20071010
  Serious: Yes (Hospitalization)
  Sender: FDA-Public Use
  Company Number: JP-MERCK-0703USA01958

PATIENT
  Age: 6 Year
  Sex: Male

DRUGS (2)
  1. SINGULAIR [Suspect]
     Route: 048
     Dates: start: 20070122
  2. FLUTICASONE PROPIONATE [Suspect]
     Dates: start: 20060901, end: 20070220

REACTIONS (1)
  - EOSINOPHILIC PNEUMONIA [None]
